FAERS Safety Report 6107916-9 (Version None)
Quarter: 2009Q1

REPORT INFORMATION
  Report Type: 
  Country: None (occurrence: None)
  Receive Date: 20090309
  Receipt Date: 20090227
  Transmission Date: 20090719
  Serious: Yes (Hospitalization)
  Sender: FDA-Public Use
  Company Number: AT-MERCK-0903AUT00005

PATIENT
  Sex: Female
  Weight: 51 kg

DRUGS (7)
  1. FOSAMAX [Suspect]
     Route: 048
  2. DICLOFENAC SODIUM [Concomitant]
     Route: 048
  3. ENALAPRIL MALEATE AND HYDROCHLOROTHIAZIDE [Concomitant]
     Route: 048
  4. RABEPRAZOLE SODIUM [Concomitant]
     Route: 048
  5. TRAMADOL HYDROCHLORIDE [Concomitant]
     Route: 048
  6. ONDANSETRON HYDROCHLORIDE [Concomitant]
     Route: 048
  7. DICLOFENAC [Concomitant]
     Route: 065

REACTIONS (4)
  - GASTRITIS [None]
  - GASTROINTESTINAL HAEMORRHAGE [None]
  - HAEMATEMESIS [None]
  - REFLUX OESOPHAGITIS [None]
